FAERS Safety Report 24131738 (Version 1)
Quarter: 2024Q3

REPORT INFORMATION
  Report Type: Spontaneous
  Country: SE (occurrence: SE)
  Receive Date: 20240724
  Receipt Date: 20240724
  Transmission Date: 20241016
  Serious: Yes (Other)
  Sender: MYLAN
  Company Number: SE-MYLANLABS-2024M1067706

PATIENT
  Sex: Male

DRUGS (3)
  1. ASPIRIN\CAFFEINE [Interacting]
     Active Substance: ASPIRIN\CAFFEINE
     Indication: Headache
     Dosage: UNK
     Route: 065
     Dates: start: 1980
  2. PHENYTOIN SODIUM [Interacting]
     Active Substance: PHENYTOIN SODIUM
     Indication: Epilepsy
     Dosage: 2 DOSAGE FORM, QD
     Route: 065
     Dates: start: 2020
  3. PHENYTOIN [Concomitant]
     Active Substance: PHENYTOIN
     Indication: Epilepsy
     Dosage: 1.25 DOSAGE FORM, QD
     Route: 065

REACTIONS (2)
  - Generalised tonic-clonic seizure [Unknown]
  - Drug interaction [Unknown]
